FAERS Safety Report 9417351 (Version 1)
Quarter: 2013Q3

REPORT INFORMATION
  Report Type: Spontaneous
  Country: US (occurrence: US)
  Receive Date: 20130724
  Receipt Date: 20130724
  Transmission Date: 20140515
  Serious: No
  Sender: FDA-Public Use
  Company Number: US-BRISTOL-MYERS SQUIBB COMPANY-18871590

PATIENT
  Age: 77 Year
  Sex: Male
  Weight: 108.84 kg

DRUGS (3)
  1. ELIQUIS [Suspect]
     Indication: ATRIAL FIBRILLATION
     Dosage: LAST DOSE:6:00AM YESTERDAY
     Dates: start: 20130429, end: 20130505
  2. LISINOPRIL [Concomitant]
     Indication: BLOOD PRESSURE
  3. SIMVASTATIN [Concomitant]

REACTIONS (1)
  - Diarrhoea [Recovered/Resolved]
